FAERS Safety Report 5160936-3 (Version None)
Quarter: 2006Q4

REPORT INFORMATION
  Report Type: 
  Country: None (occurrence: None)
  Receive Date: 20061130
  Receipt Date: 20051206
  Transmission Date: 20070319
  Serious: No
  Sender: FDA-Public Use
  Company Number: US-BRISTOL-MYERS SQUIBB COMPANY-13204953

PATIENT
  Age: 76 Year
  Sex: Female
  Weight: 73 kg

DRUGS (5)
  1. AVALIDE [Suspect]
     Indication: BLOOD PRESSURE MANAGEMENT
     Route: 048
     Dates: start: 20051103, end: 20051205
  2. NORVASC [Concomitant]
     Dosage: DURATION OF THERAPY:  ^4-5 YEARS^
  3. LIPITOR [Concomitant]
  4. XALATAN [Concomitant]
  5. POTASSIUM ACETATE [Concomitant]

REACTIONS (1)
  - RASH [None]
